FAERS Safety Report 6438971-4 (Version None)
Quarter: 2009Q4

REPORT INFORMATION
  Report Type: 
  Country: None (occurrence: None)
  Receive Date: 20091112
  Receipt Date: 20080820
  Transmission Date: 20100525
  Serious: Yes (Hospitalization)
  Sender: FDA-Public Use
  Company Number: 200813719

PATIENT
  Age: 65 Year
  Sex: Male
  Weight: 40 kg

DRUGS (10)
  1. PRIVIGEN [Suspect]
     Indication: PNEUMONIA CYTOMEGALOVIRAL
     Dosage: 40 G DAILY IV
     Route: 042
     Dates: start: 20080610, end: 20080612
  2. ERTAPENEM [Concomitant]
  3. PROTONIX [Concomitant]
  4. GEN-ACYCLOVIR [Concomitant]
  5. BACTRIM [Concomitant]
  6. CASPOFUNGIN ACETATE [Concomitant]
  7. COUMADIN [Concomitant]
  8. METOPROLOL [Concomitant]
  9. PREDNISONE [Concomitant]
  10. TACROLIMUS [Concomitant]

REACTIONS (1)
  - INTRAVASCULAR HAEMOLYSIS [None]
